FAERS Safety Report 6692201-7 (Version None)
Quarter: 2010Q2

REPORT INFORMATION
  Report Type: 
  Country: None (occurrence: None)
  Receive Date: 20100422
  Receipt Date: 20090824
  Transmission Date: 20101027
  Serious: No
  Sender: FDA-Public Use
  Company Number: US-ASTRAZENECA-2009SE09594

PATIENT
  Age: 84 Year
  Sex: Female

DRUGS (9)
  1. METOPROLOL SUCCINATE [Suspect]
     Route: 048
     Dates: start: 20070101
  2. METOPROLOL SUCCINATE [Suspect]
     Route: 048
     Dates: start: 20090801
  3. TRAMADOL HCL [Concomitant]
  4. COZAAR [Concomitant]
  5. FUROSEMIDE [Concomitant]
  6. NIFEDIPINE [Concomitant]
  7. ASPIRIN [Concomitant]
  8. POTASSIUM [Concomitant]
  9. MULTI-VITAMINS [Concomitant]

REACTIONS (2)
  - JOINT SWELLING [None]
  - SWELLING [None]
